FAERS Safety Report 14673582 (Version 1)
Quarter: 2018Q1

REPORT INFORMATION
  Report Type: Spontaneous
  Country: IT (occurrence: IT)
  Receive Date: 20180323
  Receipt Date: 20180323
  Transmission Date: 20180509
  Serious: Yes (Hospitalization)
  Sender: FDA-Public Use
  Company Number: IT-TEVA-2018-IT-870298

PATIENT
  Age: 82 Year
  Sex: Female

DRUGS (6)
  1. TRAMADOL. [Suspect]
     Active Substance: TRAMADOL
     Indication: OSTEOARTHRITIS
     Route: 048
     Dates: start: 20170101, end: 20171017
  2. LANSOX [Concomitant]
     Active Substance: LANSOPRAZOLE
  3. LEVOFLOXACIN. [Concomitant]
     Active Substance: LEVOFLOXACIN
  4. PRELECTAL [Concomitant]
  5. ACETYLSALICYLIC ACID [Concomitant]
     Active Substance: ASPIRIN
  6. ISOPTIN [Concomitant]
     Active Substance: VERAPAMIL HYDROCHLORIDE

REACTIONS (1)
  - Gastrointestinal obstruction [Unknown]

NARRATIVE: CASE EVENT DATE: 20171012
